FAERS Safety Report 9885736 (Version 2)
Quarter: 2014Q1

REPORT INFORMATION
  Report Type: Not Available
  Country: None (occurrence: US)
  Receive Date: 20140210
  Receipt Date: 20140210
  Transmission Date: 20141002
  Serious: Yes (Hospitalization)
  Sender: FDA-Public Use
  Company Number: US-ONYX-2014-0182

PATIENT
  Age: 46 Year
  Sex: Male

DRUGS (3)
  1. KYPROLIS [Suspect]
     Indication: PLASMA CELL MYELOMA
     Dates: start: 201401
  2. DEXAMETHASONE [Concomitant]
  3. POMALYST [Concomitant]

REACTIONS (6)
  - Dehydration [Recovered/Resolved]
  - Infection [Unknown]
  - Anaemia [Recovering/Resolving]
  - Blood pressure increased [Recovered/Resolved]
  - Dysphonia [Not Recovered/Not Resolved]
  - Vomiting [Recovered/Resolved]
